FAERS Safety Report 9465301 (Version 3)
Quarter: 2013Q4

REPORT INFORMATION
  Report Type: Spontaneous
  Country: FR (occurrence: FR)
  Receive Date: 20130820
  Receipt Date: 20131215
  Transmission Date: 20140711
  Serious: Yes (Other)
  Sender: FDA-Public Use
  Company Number: FR-AMGEN-FRASP2013057901

PATIENT
  Age: 48 Year
  Sex: Male

DRUGS (2)
  1. ENBREL [Suspect]
     Indication: ANKYLOSING SPONDYLITIS
     Dosage: UNK
     Route: 058
     Dates: start: 20120424, end: 201212
  2. ENBREL [Suspect]
     Dosage: UNK
     Route: 058
     Dates: start: 201302, end: 201306

REACTIONS (3)
  - 5-hydroxyindolacetic acid increased [Recovered/Resolved]
  - Injury [Not Recovered/Not Resolved]
  - Radioisotope scan abnormal [Unknown]
